FAERS Safety Report 6872481-5 (Version None)
Quarter: 2010Q3

REPORT INFORMATION
  Report Type: 
  Country: None (occurrence: None)
  Receive Date: 20100723
  Receipt Date: 20081008
  Transmission Date: 20110219
  Serious: No
  Sender: FDA-Public Use
  Company Number: US-PFIZER INC-2008083722

PATIENT
  Sex: Female
  Weight: 68.04 kg

DRUGS (4)
  1. CHANTIX [Suspect]
     Indication: SMOKING CESSATION THERAPY
     Dates: start: 20080924, end: 20080925
  2. DARVOCET [Concomitant]
     Indication: ARTHRALGIA
  3. DARVOCET [Concomitant]
     Indication: MYALGIA
  4. NEFAZODONE HCL [Concomitant]
     Indication: SLEEP DISORDER

REACTIONS (4)
  - ACTIVITIES OF DAILY LIVING IMPAIRED [None]
  - DYSPNOEA [None]
  - FEELING ABNORMAL [None]
  - MYALGIA [None]
